FAERS Safety Report 11099732 (Version 1)
Quarter: 2015Q2

REPORT INFORMATION
  Report Type: Report from Study
  Country: US (occurrence: None)
  Receive Date: 20150507
  Receipt Date: 20150507
  Transmission Date: 20150821
  Serious: Yes (Hospitalization)
  Sender: FDA-Public Use
  Company Number: US-2015CRT000470

PATIENT
  Sex: Male
  Weight: 127 kg

DRUGS (14)
  1. FUROSEMIDE. [Concomitant]
     Active Substance: FUROSEMIDE
  2. CILOSTAZOL. [Concomitant]
     Active Substance: CILOSTAZOL
  3. DESMOPRESSIN [Concomitant]
     Active Substance: DESMOPRESSIN
  4. ISOSORBIDE MONONITRATE. [Concomitant]
     Active Substance: ISOSORBIDE MONONITRATE
  5. DILTIAZEM [Concomitant]
     Active Substance: DILTIAZEM
  6. POTASSIUM [Concomitant]
     Active Substance: POTASSIUM
  7. KORLYM [Suspect]
     Active Substance: MIFEPRISTONE
     Indication: CUSHING^S SYNDROME
     Dates: start: 20150326, end: 20150407
  8. LEVOTHYROXINE [Concomitant]
     Active Substance: LEVOTHYROXINE
  9. FLOMAX /00889901/ (MORNIFLUMATE) [Concomitant]
  10. DIGOXIN. [Concomitant]
     Active Substance: DIGOXIN
  11. WARFARIN [Concomitant]
     Active Substance: WARFARIN
  12. LISINOPRIL. [Concomitant]
     Active Substance: LISINOPRIL
  13. SOTALOL. [Concomitant]
     Active Substance: SOTALOL
  14. PRAVASTATIN [Concomitant]
     Active Substance: PRAVASTATIN\PRAVASTATIN SODIUM

REACTIONS (4)
  - Asthenia [None]
  - Decreased appetite [None]
  - Ill-defined disorder [None]
  - Wound infection staphylococcal [None]

NARRATIVE: CASE EVENT DATE: 2015
